FAERS Safety Report 4579967-7 (Version None)
Quarter: 2005Q1

REPORT INFORMATION
  Report Type: 
  Country: None (occurrence: None)
  Receive Date: 20050214
  Receipt Date: 20050202
  Transmission Date: 20050727
  Serious: Yes (Hospitalization, Other)
  Sender: FDA-Public Use
  Company Number: PHBS2005JP01749

PATIENT
  Age: 54 Year
  Sex: Female

DRUGS (1)
  1. BROMOCRIPTINE MESYLATE [Suspect]
     Indication: PITUITARY TUMOUR
     Route: 048

REACTIONS (7)
  - HEADACHE [None]
  - HYPOPHYSECTOMY [None]
  - NAUSEA [None]
  - PITUITARY HAEMORRHAGE [None]
  - PITUITARY INFARCTION [None]
  - PYREXIA [None]
  - VISUAL FIELD DEFECT [None]
